FAERS Safety Report 18727706 (Version 1)
Quarter: 2021Q1

REPORT INFORMATION
  Report Type: Spontaneous
  Country: US (occurrence: US)
  Receive Date: 20210111
  Receipt Date: 20210111
  Transmission Date: 20210419
  Serious: Yes (Other)
  Sender: FDA-Public Use
  Company Number: US-ELI_LILLY_AND_COMPANY-US202101000009

PATIENT
  Age: 67 Year
  Sex: Female

DRUGS (2)
  1. TRULICITY [Suspect]
     Active Substance: DULAGLUTIDE
     Dosage: 0.75 MG, UNKNOWN
     Route: 058
  2. TRULICITY [Suspect]
     Active Substance: DULAGLUTIDE
     Indication: DIABETES MELLITUS
     Dosage: 0.75 MG, UNKNOWN
     Route: 058
     Dates: start: 20201230

REACTIONS (8)
  - Tremor [Unknown]
  - Dizziness [Unknown]
  - Blood glucose increased [Unknown]
  - Defaecation urgency [Recovered/Resolved]
  - Weight decreased [Unknown]
  - Hypoaesthesia [Unknown]
  - Syncope [Unknown]
  - Hypersensitivity [Unknown]

NARRATIVE: CASE EVENT DATE: 20201230
